FAERS Safety Report 18099142 (Version 1)
Quarter: 2020Q3

REPORT INFORMATION
  Report Type: Spontaneous
  Country: US (occurrence: US)
  Receive Date: 20200731
  Receipt Date: 20200731
  Transmission Date: 20201103
  Serious: Yes (Hospitalization, Other)
  Sender: FDA-Public Use
  Company Number: US-SCIEGEN-2020SCILIT00141

PATIENT
  Age: 36 Year
  Sex: Male

DRUGS (1)
  1. GABAPENTIN TABLETS [Suspect]
     Active Substance: GABAPENTIN
     Indication: ALCOHOL ABUSE
     Dosage: 600 MG FOR EVERY 6 HOURS FOR 3 DAYS
     Route: 065

REACTIONS (1)
  - Drug-induced liver injury [Recovered/Resolved]
